FAERS Safety Report 8449954-7 (Version None)
Quarter: 2012Q2

REPORT INFORMATION
  Report Type: 
  Country: None (occurrence: None)
  Receive Date: 20120620
  Receipt Date: 20120614
  Transmission Date: 20120825
  Serious: Yes (Other)
  Sender: FDA-Public Use
  Company Number: PHEH2007US02747

PATIENT
  Sex: Female
  Weight: 80 kg

DRUGS (4)
  1. GLEEVEC [Suspect]
     Dosage: 400 MG, DAILY
     Route: 048
     Dates: start: 20090224, end: 20120614
  2. PREDNISONE [Concomitant]
  3. GLEEVEC [Suspect]
     Indication: CHRONIC MYELOID LEUKAEMIA
     Dosage: 400 MG, QD
     Route: 048
     Dates: start: 20070131
  4. GLEEVEC [Suspect]
     Dosage: 400 MG, DAILY
     Route: 048
     Dates: start: 20071101

REACTIONS (17)
  - RHEUMATOID ARTHRITIS [None]
  - SWELLING [None]
  - MYALGIA [None]
  - FIBROMYALGIA [None]
  - BONE PAIN [None]
  - DIARRHOEA [None]
  - PAIN [None]
  - DRUG INTOLERANCE [None]
  - VISION BLURRED [None]
  - FLUID RETENTION [None]
  - EYE SWELLING [None]
  - DYSPEPSIA [None]
  - DYSPNOEA [None]
  - ANAEMIA [None]
  - BLOOD IRON DECREASED [None]
  - MUSCLE SPASMS [None]
  - BLOOD CALCIUM DECREASED [None]
